FAERS Safety Report 25552984 (Version 1)
Quarter: 2025Q3

REPORT INFORMATION
  Report Type: Spontaneous
  Country: US (occurrence: US)
  Receive Date: 20250715
  Receipt Date: 20250715
  Transmission Date: 20251021
  Serious: No
  Sender: BRISTOL-MYERS SQUIBB COMPANY
  Company Number: US-BRISTOL-MYERS SQUIBB COMPANY-2025-098763

PATIENT
  Age: 70 Year
  Sex: Female
  Weight: 74.39 kg

DRUGS (1)
  1. REVLIMID [Suspect]
     Active Substance: LENALIDOMIDE
     Indication: Urethral cancer
     Dosage: 2 WEEKS ON, 1 WEEK OFF
     Route: 048

REACTIONS (2)
  - Blood calcium increased [Unknown]
  - Off label use [Unknown]
